FAERS Safety Report 9338927 (Version 1)
Quarter: 2013Q2

REPORT INFORMATION
  Report Type: Spontaneous
  Country: US (occurrence: None)
  Receive Date: 20130603
  Receipt Date: 20130603
  Transmission Date: 20140414
  Serious: Yes (Hospitalization)
  Sender: FDA-Public Use
  Company Number: 2013036175

PATIENT
  Age: 63 Year
  Sex: Male

DRUGS (2)
  1. PRIVIGEN (IMMUNE GLOBULIN INTRAVENOUS (HUMAN) 10% LIQUID) [Suspect]
     Indication: STEVENS-JOHNSON SYNDROME
     Dosage: 100 G TOTAL
  2. PRIVIGEN (IMMUNE GLOBULIN INTRAVENOUS (HUMAN) 10% LIQUID) [Suspect]
     Indication: TOXIC EPIDERMAL NECROLYSIS
     Dosage: 100 G TOTAL

REACTIONS (5)
  - Stevens-Johnson syndrome [None]
  - Haemolysis [None]
  - Pigment nephropathy [None]
  - Haemodialysis [None]
  - Anaemia [None]
